FAERS Safety Report 5619325-7 (Version None)
Quarter: 2008Q1

REPORT INFORMATION
  Report Type: 
  Country: None (occurrence: None)
  Receive Date: 20080114
  Receipt Date: 20070314
  Transmission Date: 20080703
  Serious: Yes (Other)
  Sender: FDA-Public Use
  Company Number: A03200701994

PATIENT

DRUGS (3)
  1. PLAVIX [Suspect]
     Indication: CARDIOVASCULAR DISORDER
     Dosage: 75 MG QD - ORAL
     Route: 048
  2. PLAVIX [Suspect]
     Indication: CORONARY ARTERY BYPASS
     Dosage: 75 MG QD - ORAL
     Route: 048
  3. PLAVIX [Suspect]
     Indication: STENT PLACEMENT
     Dosage: 75 MG QD - ORAL
     Route: 048

REACTIONS (2)
  - OVERDOSE [None]
  - THROMBOSIS [None]
